FAERS Safety Report 17920191 (Version 2)
Quarter: 2022Q3

REPORT INFORMATION
  Report Type: Spontaneous
  Country: CA (occurrence: CA)
  Receive Date: 20200620
  Receipt Date: 20220825
  Transmission Date: 20221027
  Serious: Yes (Hospitalization, Other)
  Sender: FDA-Public Use
  Company Number: None

PATIENT
  Age: 82 Year
  Sex: Female

DRUGS (24)
  1. ATORVASTATIN [Suspect]
     Active Substance: ATORVASTATIN
     Indication: Product used for unknown indication
     Dosage: 1 EVERY 1 DAYS
     Route: 048
  2. CLONAZEPAM [Suspect]
     Active Substance: CLONAZEPAM
     Indication: Product used for unknown indication
     Route: 048
  3. METFORMIN [Suspect]
     Active Substance: METFORMIN HYDROCHLORIDE
     Indication: Product used for unknown indication
     Dosage: 2 EVERY 1 DAYS
     Route: 048
  4. PANTOPRAZOLE [Suspect]
     Active Substance: PANTOPRAZOLE
     Indication: Product used for unknown indication
     Dosage: 2 EVERY 1 DAYS, NOT SPECIFIED
     Route: 048
  5. ERGOCALCIFEROL [Suspect]
     Active Substance: ERGOCALCIFEROL
     Indication: Product used for unknown indication
     Dosage: NOT SPECIFIED. 2 EVERY 1 DAYS
     Route: 048
  6. SANDOSTATIN [Suspect]
     Active Substance: OCTREOTIDE ACETATE
     Indication: Neuroendocrine tumour
     Dosage: 1 EVERY 1 MONTHS
     Route: 030
  7. GABAPENTIN [Concomitant]
     Active Substance: GABAPENTIN
     Dosage: 1 EVERY 1 DAYS
     Route: 048
  8. DIETARY SUPPLEMENT\GRAPE SEED EXTRACT [Concomitant]
     Active Substance: DIETARY SUPPLEMENT\GRAPE SEED EXTRACT
     Route: 048
  9. HYDROCHLOROTHIAZIDE [Concomitant]
     Active Substance: HYDROCHLOROTHIAZIDE
     Dosage: 1 EVERY 1 DAYS
     Route: 048
  10. IMODIUM [Concomitant]
     Active Substance: LOPERAMIDE HYDROCHLORIDE
     Dosage: 2 EVERY 1 DAYS
     Route: 048
  11. INSULIN NOS [Concomitant]
     Active Substance: INSULIN NOS
     Dosage: DROPS ORAL, GLOBULES ORAL
  12. CANNABIDIOL [Concomitant]
     Active Substance: CANNABIDIOL
     Route: 048
  13. LANTUS [Concomitant]
     Active Substance: INSULIN GLARGINE
     Dosage: SOLUTION SUBCUTANEOUS
     Route: 058
  14. NOVORAPID [Concomitant]
     Active Substance: INSULIN ASPART
     Dosage: SOLUTION SUBCUTANEOUS
     Route: 065
  15. FERROUS FUMARATE [Concomitant]
     Active Substance: FERROUS FUMARATE
     Dosage: 1 EVERY 1 DAYS
     Route: 048
  16. PROPOLIS WAX [Concomitant]
     Active Substance: PROPOLIS WAX
     Dosage: DROPS ORAL
     Route: 048
  17. SERTRALINE HYDROCHLORIDE [Concomitant]
     Active Substance: SERTRALINE HYDROCHLORIDE
     Dosage: 1 EVERY 1 DAYS
     Route: 048
  18. TRAZODONE [Concomitant]
     Active Substance: TRAZODONE HYDROCHLORIDE
     Dosage: 1 EVERY 1 DAYS
     Route: 048
  19. VARENICLINE TARTRATE [Concomitant]
     Active Substance: VARENICLINE TARTRATE
     Dosage: 1 EVERY 1 DAYS
     Route: 048
  20. VERAPAMIL [Concomitant]
     Active Substance: VERAPAMIL HYDROCHLORIDE
     Dosage: 1 EVERY 1 DAYS
     Route: 048
  21. ASPIRIN [Concomitant]
     Active Substance: ASPIRIN
     Dosage: 1 EVERY 1 DAYS
  22. SANDOSTATIN [Suspect]
     Active Substance: OCTREOTIDE ACETATE
     Indication: Neuroendocrine tumour
     Dosage: 1 EVERY 3 WEEKS
     Route: 048
  23. SANDOSTATIN [Suspect]
     Active Substance: OCTREOTIDE ACETATE
     Indication: Neuroendocrine tumour
     Dosage: 1 EVERY 1 WEEKS
     Route: 030
  24. ASPIRIN [Concomitant]
     Active Substance: ASPIRIN
     Dosage: TABLET (DELAYED- RELEASE), 1 EVERY 1 DAYS
     Route: 048

REACTIONS (16)
  - Blood pressure diastolic decreased [Unknown]
  - Blood pressure systolic increased [Unknown]
  - Body temperature decreased [Unknown]
  - Bronchitis [Unknown]
  - Cerebrovascular accident [Unknown]
  - Cough [Unknown]
  - Diarrhoea [Unknown]
  - Dizziness [Unknown]
  - Fall [Unknown]
  - Fatigue [Unknown]
  - Hip fracture [Unknown]
  - Inappropriate schedule of product administration [Unknown]
  - Large intestine polyp [Unknown]
  - Pneumonia [Unknown]
  - Productive cough [Unknown]
  - Wheezing [Unknown]
